FAERS Safety Report 9100478 (Version 1)
Quarter: 2013Q1

REPORT INFORMATION
  Report Type: Spontaneous
  Country: JP (occurrence: JP)
  Receive Date: 20130215
  Receipt Date: 20130215
  Transmission Date: 20140127
  Serious: Yes (Hospitalization, Other)
  Sender: FDA-Public Use
  Company Number: PHHY2013JP010113

PATIENT
  Age: 45 Year
  Sex: Female

DRUGS (3)
  1. NEORAL [Suspect]
     Indication: TROPICAL SPASTIC PARESIS
     Dosage: 50 MG, DAILY
     Route: 048
     Dates: start: 201210, end: 20130120
  2. NEORAL [Suspect]
     Dosage: 50 MG, DAILY
     Route: 048
     Dates: start: 20130124
  3. PREDONINE [Concomitant]
     Dosage: 10 MG, DAILY

REACTIONS (2)
  - Fracture [Recovering/Resolving]
  - Fall [Unknown]
